FAERS Safety Report 7013350-X (Version None)
Quarter: 2010Q3

REPORT INFORMATION
  Report Type: 
  Country: None (occurrence: None)
  Receive Date: 20100924
  Receipt Date: 20100915
  Transmission Date: 20110219
  Serious: Yes (Death, Other)
  Sender: FDA-Public Use
  Company Number: JP-ROCHE-725456

PATIENT
  Sex: Female
  Weight: 53 kg

DRUGS (10)
  1. BEVACIZUMAB [Suspect]
     Indication: BREAST CANCER METASTATIC
     Dosage: ROUTE: INTRAVENOUS (NOT OTHERWISE SPECIFIED)
     Route: 041
     Dates: start: 20070928, end: 20081104
  2. PACLITAXEL [Suspect]
     Indication: BREAST CANCER METASTATIC
     Dosage: ROUTE: INTRAVENOUS (NOT OTHERWISE SPECIFIED)
     Route: 041
     Dates: start: 20070928, end: 20081104
  3. RINDERON [Suspect]
     Indication: MALAISE
     Route: 048
     Dates: start: 20081122
  4. LASIX [Suspect]
     Indication: OEDEMA
     Route: 048
     Dates: start: 20070928, end: 20081104
  5. FEMARA [Suspect]
     Indication: BREAST CANCER
     Route: 048
     Dates: start: 20081212
  6. ZOLADEX [Suspect]
     Indication: BREAST CANCER
     Route: 058
     Dates: start: 20081212
  7. KETOPROFEN [Concomitant]
     Dosage: DRUG NAME: MOHRUS TAPE, FORM: TAPE, NOTE: FOR TON
     Route: 062
     Dates: start: 20081212
  8. MOMETASONE FUROATE [Concomitant]
     Dosage: DRUG NAME: FUMETA:OINTMENT, NOTE: FOR TON
     Route: 062
     Dates: start: 20071228
  9. DORNER [Concomitant]
     Route: 048
     Dates: start: 20081212, end: 20081216
  10. DORNER [Concomitant]
     Route: 048
     Dates: start: 20081217, end: 20081223

REACTIONS (10)
  - MASKED FACIES [None]
  - MOVEMENT DISORDER [None]
  - MYOCARDIAL ISCHAEMIA [None]
  - PALPITATIONS [None]
  - PARANEOPLASTIC SYNDROME [None]
  - PULMONARY FIBROSIS [None]
  - PULMONARY HYPERTENSION [None]
  - RAYNAUD'S PHENOMENON [None]
  - RESTRICTIVE PULMONARY DISEASE [None]
  - SYSTEMIC SCLEROSIS [None]
